FAERS Safety Report 22205992 (Version 1)
Quarter: 2023Q2

REPORT INFORMATION
  Report Type: Spontaneous
  Country: DK (occurrence: DK)
  Receive Date: 20230413
  Receipt Date: 20230413
  Transmission Date: 20230722
  Serious: Yes (Other)
  Sender: FDA-Public Use
  Company Number: None

PATIENT
  Age: 51 Year
  Sex: Male
  Weight: 75 kg

DRUGS (2)
  1. XARELTO [Suspect]
     Active Substance: RIVAROXABAN
     Indication: Atrial fibrillation
     Dosage: STRENGTH: 20 MG
     Route: 048
     Dates: start: 20211008, end: 20211101
  2. ATORVASTATIN [Concomitant]
     Active Substance: ATORVASTATIN
     Indication: Hypercholesterolaemia
     Dates: start: 20210707

REACTIONS (5)
  - Pain [Recovering/Resolving]
  - Semen viscosity abnormal [Recovering/Resolving]
  - Painful ejaculation [Recovering/Resolving]
  - Erectile dysfunction [Recovering/Resolving]
  - Genital hypoaesthesia [Recovering/Resolving]

NARRATIVE: CASE EVENT DATE: 20211001
